FAERS Safety Report 11054098 (Version 1)
Quarter: 2015Q2

REPORT INFORMATION
  Report Type: Spontaneous
  Country: US (occurrence: US)
  Receive Date: 20150422
  Receipt Date: 20150422
  Transmission Date: 20150821
  Serious: No
  Sender: FDA-Public Use
  Company Number: US-TEVA-499494USA

PATIENT
  Sex: Female

DRUGS (2)
  1. METFORMIN [Suspect]
     Active Substance: METFORMIN HYDROCHLORIDE
     Route: 065
  2. LOSARTAN [Suspect]
     Active Substance: LOSARTAN
     Route: 065

REACTIONS (4)
  - Abdominal pain upper [Recovered/Resolved]
  - Urticaria [Unknown]
  - Weight decreased [Recovered/Resolved]
  - Peripheral swelling [Not Recovered/Not Resolved]
